FAERS Safety Report 12836260 (Version 1)
Quarter: 2016Q4

REPORT INFORMATION
  Report Type: Spontaneous
  Country: US (occurrence: US)
  Receive Date: 20161011
  Receipt Date: 20161011
  Transmission Date: 20170207
  Serious: No
  Sender: FDA-Public Use
  Company Number: US-GLAXOSMITHKLINE-US2016147154

PATIENT
  Age: 47 Year
  Sex: Female

DRUGS (2)
  1. REQUIP XL [Suspect]
     Active Substance: ROPINIROLE HYDROCHLORIDE
     Indication: RESTLESS LEGS SYNDROME
     Dosage: 8 MG, QD
     Route: 048
     Dates: start: 20161001, end: 20161005
  2. LAMICTAL XR [Concomitant]
     Active Substance: LAMOTRIGINE

REACTIONS (8)
  - Condition aggravated [Unknown]
  - Product formulation issue [Unknown]
  - Middle insomnia [Unknown]
  - Insomnia [Unknown]
  - Restless legs syndrome [Unknown]
  - Restlessness [Unknown]
  - Drug ineffective [Not Recovered/Not Resolved]
  - Product substitution issue [Unknown]

NARRATIVE: CASE EVENT DATE: 201610
